FAERS Safety Report 7947144-5 (Version None)
Quarter: 2011Q4

REPORT INFORMATION
  Report Type: 
  Country: None (occurrence: None)
  Receive Date: 20111129
  Receipt Date: 20111116
  Transmission Date: 20120403
  Serious: Yes (Hospitalization)
  Sender: FDA-Public Use
  Company Number: AU-ASTRAZENECA-2011SE69435

PATIENT

DRUGS (1)
  1. CRESTOR [Suspect]
     Dosage: ONE TABLET
     Route: 048

REACTIONS (2)
  - DYSPNOEA [None]
  - TREMOR [None]
